FAERS Safety Report 6682429-4 (Version None)
Quarter: 2010Q2

REPORT INFORMATION
  Report Type: 
  Country: None (occurrence: None)
  Receive Date: 20100415
  Receipt Date: 20100409
  Transmission Date: 20101027
  Serious: Yes (Other)
  Sender: FDA-Public Use
  Company Number: CA-ASTRAZENECA-2010SE10419

PATIENT
  Age: 53 Year
  Sex: Female

DRUGS (1)
  1. ATACAND HCT [Suspect]
     Indication: HYPERTENSION
     Dosage: 16 + 12.5 MG DAILY
     Route: 048
     Dates: start: 20100129, end: 20100301

REACTIONS (4)
  - BURNING SENSATION [None]
  - EYELID OEDEMA [None]
  - PRURITUS [None]
  - RASH [None]
